FAERS Safety Report 5981650-8 (Version None)
Quarter: 2008Q4

REPORT INFORMATION
  Report Type: 
  Country: None (occurrence: None)
  Receive Date: 20081202
  Receipt Date: 20081118
  Transmission Date: 20090506
  Serious: Yes (Hospitalization)
  Sender: FDA-Public Use
  Company Number: KV200800306

PATIENT
  Age: 46 Year
  Sex: Female
  Weight: 46.7 kg

DRUGS (6)
  1. MORPHINE SULFATE [Suspect]
     Indication: MIGRAINE
     Dosage: 15 MG, ONE TABLET AM, ONE TABLET PM, ORAL
     Route: 048
     Dates: start: 20080301, end: 20081027
  2. GABAPENTIN [Concomitant]
  3. KLONOPIN [Concomitant]
  4. LOVASTATIN [Concomitant]
  5. TRAZODONE HCL [Concomitant]
  6. MORPHINE SULFATE IR (MORPINE SULFATE) IMMEDIATE RELEAST TABLET [Concomitant]

REACTIONS (5)
  - CONSTIPATION [None]
  - GASTROINTESTINAL DISORDER [None]
  - INTESTINAL FUNCTIONAL DISORDER [None]
  - PRODUCT QUALITY ISSUE [None]
  - WEIGHT DECREASED [None]
